FAERS Safety Report 19406171 (Version 11)
Quarter: 2024Q1

REPORT INFORMATION
  Report Type: Spontaneous
  Country: IN (occurrence: IN)
  Receive Date: 20210611
  Receipt Date: 20240228
  Transmission Date: 20240409
  Serious: Yes (Other)
  Sender: FDA-Public Use
  Company Number: IN-PFIZER INC-2018508446

PATIENT
  Age: 53 Year
  Sex: Female

DRUGS (11)
  1. PALBOCICLIB [Suspect]
     Active Substance: PALBOCICLIB
     Indication: Breast cancer metastatic
     Dosage: 125 MG, CYCLIC (ONCE DAILY 21 DAYS IN A MONTH)
     Route: 048
     Dates: start: 20181024
  2. PALBOCICLIB [Suspect]
     Active Substance: PALBOCICLIB
     Dosage: 125 MG, CYCLIC (DAILY FOR 21 DAYS IN A MONTH FOR 6 MONTHS)
     Route: 048
     Dates: start: 20210514
  3. GOSERELIN [Suspect]
     Active Substance: GOSERELIN
     Dosage: 4 MG
     Route: 042
  4. LETROZOLE [Concomitant]
     Active Substance: LETROZOLE
     Dosage: UNK, DAILY (FOR 6 MONTHS)
     Dates: start: 201810
  5. ZOLEDRONIC ACID [Concomitant]
     Active Substance: ZOLEDRONIC ACID
     Dosage: 4 MG, CYCLIC (OVER20MIN ONCE IN 6MONTHS)
     Route: 042
     Dates: start: 201812
  6. ZOLEDRONIC ACID [Concomitant]
     Active Substance: ZOLEDRONIC ACID
     Dosage: 4 MG, CYCLIC (OVER15MIN ON DAY 1 6MONTHS)
     Route: 042
     Dates: start: 201812
  7. ZOLEDRONIC ACID [Concomitant]
     Active Substance: ZOLEDRONIC ACID
     Dosage: 4 MG DAY 1 - 3 MONTHLY
     Route: 042
  8. UPRISE D3 [Concomitant]
     Dosage: 1 DF, WEEKLY (ONCE A WEEK IN A MONTH)
     Dates: start: 201812
  9. Osteophos [Concomitant]
     Dosage: 70 MG, WEEKLY (FOR 6 MONTHS)
  10. CALCIUM CARBONATE [Concomitant]
     Active Substance: CALCIUM CARBONATE
     Dosage: 1, DAILY
  11. FULVESTRANT [Concomitant]
     Active Substance: FULVESTRANT
     Dosage: 500 MG
     Route: 030

REACTIONS (27)
  - Seizure [Unknown]
  - Faeces discoloured [Unknown]
  - Haemorrhage [Unknown]
  - Wheezing [Unknown]
  - Pharyngeal swelling [Unknown]
  - Swollen tongue [Unknown]
  - Lip swelling [Unknown]
  - Swelling face [Unknown]
  - Flatulence [Not Recovered/Not Resolved]
  - Vitamin D decreased [Recovered/Resolved]
  - Cough [Unknown]
  - Blood creatinine abnormal [Unknown]
  - Osteoporosis [Unknown]
  - Chest discomfort [Unknown]
  - Osteopenia [Unknown]
  - Haemoglobin abnormal [Unknown]
  - Total lung capacity abnormal [Unknown]
  - Vomiting [Unknown]
  - Pyrexia [Unknown]
  - Alopecia [Not Recovered/Not Resolved]
  - Arthralgia [Unknown]
  - Pruritus [Unknown]
  - Haemoglobin decreased [Not Recovered/Not Resolved]
  - Neoplasm progression [Unknown]
  - White blood cell count decreased [Unknown]
  - Platelet count decreased [Unknown]
  - Inappropriate schedule of product administration [Unknown]

NARRATIVE: CASE EVENT DATE: 20201012
